FAERS Safety Report 4540231-3 (Version None)
Quarter: 2004Q4

REPORT INFORMATION
  Report Type: 
  Country: None (occurrence: None)
  Receive Date: 20041228
  Receipt Date: 20041221
  Transmission Date: 20050328
  Serious: Yes (Other)
  Sender: FDA-Public Use
  Company Number: US-MERCK-0412USA02635

PATIENT
  Age: 76 Year
  Sex: Male

DRUGS (2)
  1. VIOXX [Suspect]
     Indication: ARTHRITIS
     Route: 048
     Dates: start: 19990101, end: 20010101
  2. MICRONASE [Concomitant]
     Route: 065

REACTIONS (3)
  - EXTRASYSTOLES [None]
  - HERNIA [None]
  - ULCER [None]
